FAERS Safety Report 8391129-4 (Version None)
Quarter: 2012Q2

REPORT INFORMATION
  Report Type: 
  Country: None (occurrence: None)
  Receive Date: 20120529
  Receipt Date: 20120521
  Transmission Date: 20120825
  Serious: Yes (Hospitalization, Other)
  Sender: FDA-Public Use
  Company Number: IT-SANOFI-AVENTIS-2012SA035926

PATIENT
  Age: 74 Year
  Sex: Male

DRUGS (3)
  1. ASPIRIN [Suspect]
     Indication: PERCUTANEOUS CORONARY INTERVENTION
     Route: 065
  2. BIVALIRUDIN [Suspect]
     Indication: PERCUTANEOUS CORONARY INTERVENTION
     Route: 065
  3. CLOPIDOGREL BISULFATE [Suspect]
     Indication: PERCUTANEOUS CORONARY INTERVENTION
     Route: 065

REACTIONS (2)
  - INTRACRANIAL HAEMATOMA [None]
  - MONOPLEGIA [None]
